FAERS Safety Report 9067267 (Version 1)
Quarter: 2013Q1

REPORT INFORMATION
  Report Type: Report from Study
  Country: US (occurrence: US)
  Receive Date: 20130201
  Receipt Date: 20130201
  Transmission Date: 20140127
  Serious: Yes (Other)
  Sender: FDA-Public Use
  Company Number: US-ABBOTT-12P-163-1028979-00

PATIENT
  Sex: Male
  Weight: 80.81 kg

DRUGS (6)
  1. HUMIRA [Suspect]
     Indication: PSORIATIC ARTHROPATHY
     Dates: start: 201004, end: 201104
  2. HUMIRA [Suspect]
     Indication: PSORIASIS
  3. METHOTREXATE [Concomitant]
     Indication: PSORIATIC ARTHROPATHY
  4. METHOTREXATE [Concomitant]
     Indication: PSORIASIS
  5. DILANTIN [Concomitant]
     Indication: CONVULSION
  6. IRON [Concomitant]
     Indication: MINERAL SUPPLEMENTATION

REACTIONS (5)
  - Hip fracture [Recovered/Resolved]
  - Psoriasis [Not Recovered/Not Resolved]
  - Disorientation [Recovered/Resolved]
  - Pain [Recovered/Resolved]
  - Osteoporosis [Not Recovered/Not Resolved]
